FAERS Safety Report 4316481-8 (Version None)
Quarter: 2004Q1

REPORT INFORMATION
  Report Type: 
  Country: None (occurrence: None)
  Receive Date: 20040310
  Receipt Date: 20040105
  Transmission Date: 20041129
  Serious: No
  Sender: FDA-Public Use
  Company Number: FROV000155

PATIENT
  Age: 73 Year
  Sex: Female
  Weight: 39.0093 kg

DRUGS (2)
  1. FROVA [Suspect]
     Indication: MIGRAINE
     Dosage: 2.5 MG AS NEEDED ORAL
     Route: 048
     Dates: start: 20031103
  2. UNSPECIFIED LAXATIVE [Concomitant]

REACTIONS (3)
  - NAUSEA [None]
  - PAIN IN EXTREMITY [None]
  - WEIGHT DECREASED [None]
